FAERS Safety Report 9996585 (Version 1)
Quarter: 2014Q1

REPORT INFORMATION
  Report Type: Spontaneous
  Country: US (occurrence: US)
  Receive Date: 20140311
  Receipt Date: 20140311
  Transmission Date: 20141002
  Serious: No
  Sender: FDA-Public Use
  Company Number: US-009507513-1403USA004747

PATIENT
  Age: 26 Year
  Sex: Female
  Weight: 79.82 kg

DRUGS (2)
  1. NEXPLANON [Suspect]
     Indication: CONTRACEPTION
     Dosage: 3 YEARS IMPLANT, IMPLANT IN LEFT ARM.
     Route: 059
     Dates: start: 20140212
  2. PHENTERMINE [Concomitant]
     Indication: WEIGHT

REACTIONS (1)
  - Menstruation delayed [Unknown]
